FAERS Safety Report 8246521-5 (Version None)
Quarter: 2012Q1

REPORT INFORMATION
  Report Type: 
  Country: None (occurrence: None)
  Receive Date: 20120330
  Receipt Date: 20120320
  Transmission Date: 20120608
  Serious: Yes (Hospitalization, Other)
  Sender: FDA-Public Use
  Company Number: FR-BRISTOL-MYERS SQUIBB COMPANY-16469660

PATIENT
  Age: 66 Year
  Sex: Female
  Weight: 42 kg

DRUGS (6)
  1. ACETAMINOPHEN [Suspect]
     Dosage: TWO TABLETS
  2. TETRAZEPAM [Suspect]
  3. ACETAMINOPHEN W/ CODEINE [Suspect]
  4. COUMADIN [Suspect]
     Indication: THROMBOSIS PROPHYLAXIS
     Route: 048
     Dates: end: 20120305
  5. VESICARE [Suspect]
  6. ACETAMINOPHEN AND TRAMADOL HCL [Suspect]

REACTIONS (6)
  - PNEUMONIA [None]
  - CYTOLYTIC HEPATITIS [None]
  - PNEUMONIA ASPIRATION [None]
  - PROTHROMBIN TIME PROLONGED [None]
  - BLADDER DILATATION [None]
  - INTERNATIONAL NORMALISED RATIO INCREASED [None]
